FAERS Safety Report 20175215 (Version 2)
Quarter: 2021Q4

REPORT INFORMATION
  Report Type: Spontaneous
  Country: US (occurrence: US)
  Receive Date: 20211213
  Receipt Date: 20211214
  Transmission Date: 20220303
  Serious: Yes (Other)
  Sender: FDA-Public Use
  Company Number: US-BAYER-2021A261192

PATIENT
  Age: 58 Year
  Sex: Male

DRUGS (2)
  1. ASPIRIN [Suspect]
     Active Substance: ASPIRIN
  2. IBUPROFEN [Suspect]
     Active Substance: IBUPROFEN
     Indication: Toothache

REACTIONS (9)
  - Melaena [None]
  - Haemoglobin decreased [None]
  - Gastric ulcer [None]
  - Pyloric stenosis [None]
  - Duodenal ulcer [None]
  - Abdominal lymphadenopathy [None]
  - Gastrointestinal disorder [None]
  - Duodenitis [None]
  - Product use issue [None]
